FAERS Safety Report 21885540 (Version 1)
Quarter: 2023Q1

REPORT INFORMATION
  Report Type: Spontaneous
  Country: FR (occurrence: FR)
  Receive Date: 20230119
  Receipt Date: 20230119
  Transmission Date: 20230417
  Serious: Yes (Hospitalization)
  Sender: FDA-Public Use
  Company Number: None

PATIENT
  Age: 88 Year
  Sex: Male
  Weight: 82 kg

DRUGS (2)
  1. BICALUTAMIDE [Suspect]
     Active Substance: BICALUTAMIDE
     Indication: Prostate cancer
     Dosage: 50 MILLIGRAM
     Route: 048
     Dates: start: 20221025, end: 20221108
  2. GONADORELIN [Suspect]
     Active Substance: GONADORELIN
     Indication: Prostate cancer
     Dosage: 1 DOSAGE FORM, Q3MONTHS
     Route: 058
     Dates: start: 20221025

REACTIONS (1)
  - Cardiac failure [Recovering/Resolving]

NARRATIVE: CASE EVENT DATE: 20221108
